FAERS Safety Report 5856338-4 (Version None)
Quarter: 2008Q3

REPORT INFORMATION
  Report Type: 
  Country: None (occurrence: None)
  Receive Date: 20080825
  Receipt Date: 20080811
  Transmission Date: 20090109
  Serious: Yes (Hospitalization)
  Sender: FDA-Public Use
  Company Number: FR-ELI_LILLY_AND_COMPANY-FR200806002999

PATIENT
  Age: 80 Year
  Sex: Female

DRUGS (4)
  1. FORTEO [Suspect]
     Indication: OSTEOPOROSIS
     Dosage: 20 UG, DAILY (1/D)
     Route: 058
     Dates: start: 20070801
  2. MOPRAL [Concomitant]
     Dosage: 20 MG, DAILY (1/D)
     Route: 048
  3. LIPANTHYL [Concomitant]
     Dosage: 1 D/F, DAILY (1/D) (ONE TABLET DAILY)
     Route: 048
  4. ARICEPT [Concomitant]
     Dosage: 10 MG, DAILY (1/D)
     Route: 048

REACTIONS (1)
  - CEREBROVASCULAR ACCIDENT [None]
